FAERS Safety Report 7588458-0 (Version None)
Quarter: 2011Q3

REPORT INFORMATION
  Report Type: 
  Country: None (occurrence: None)
  Receive Date: 20110705
  Receipt Date: 20110602
  Transmission Date: 20111222
  Serious: Yes (Other)
  Sender: FDA-Public Use
  Company Number: US-BAYER-2011-021759

PATIENT
  Age: 29 Year
  Sex: Female
  Weight: 71.202 kg

DRUGS (6)
  1. VERAPAMIL HCL [Concomitant]
     Dosage: 120 MG, UNK
     Route: 048
  2. PHENERGAN HCL [Concomitant]
     Dosage: 12.5 MG, Q1MON EVERY 6 HR AS NEEDED
     Route: 048
  3. REGLAN [Concomitant]
     Dosage: 10 MG, Q1MON EVERY 6 HR
     Route: 048
  4. DROSPIRENONE AND ETHINYL ESTRADIOL [Suspect]
     Dosage: UNK
  5. YASMIN [Suspect]
     Route: 048
  6. YASMIN [Suspect]
     Indication: CONTRACEPTION
     Dosage: UNK UNK, QD
     Route: 048
     Dates: start: 20070101, end: 20081001

REACTIONS (2)
  - GALLBLADDER DISORDER [None]
  - ANXIETY [None]
